FAERS Safety Report 6613439-0 (Version None)
Quarter: 2010Q1

REPORT INFORMATION
  Report Type: 
  Country: None (occurrence: None)
  Receive Date: 20100225
  Receipt Date: 20100129
  Transmission Date: 20100710
  Serious: Yes (Death, Hospitalization, Other)
  Sender: FDA-Public Use
  Company Number: ADE2008-0228

PATIENT
  Age: 63 Year
  Sex: Male

DRUGS (12)
  1. SIMVASTATIN [Suspect]
     Indication: HYPERCHOLESTEROLAEMIA
     Dosage: 10MG - ORAL
     Route: 048
  2. FUSICIDIC ACID [Suspect]
     Indication: STAPHYLOCOCCAL INFECTION
     Dosage: 10MG - ORAL
     Route: 048
  3. ASPIRIN [Concomitant]
  4. BISOPROLOL [Concomitant]
  5. DICLOFENAC [Concomitant]
  6. DIPYRIDAMOLE [Concomitant]
  7. ENALAPRIL MALEATE [Concomitant]
  8. RANITIDINE [Concomitant]
  9. CEFUROXIME [Concomitant]
  10. DESLORATADINE [Concomitant]
  11. METRONIDAZOLE [Concomitant]
  12. VANCOMYCIN [Concomitant]

REACTIONS (16)
  - ARRHYTHMIA [None]
  - CARDIAC ARREST [None]
  - COLITIS ISCHAEMIC [None]
  - CONTINUOUS HAEMODIAFILTRATION [None]
  - COUGH DECREASED [None]
  - CRITICAL ILLNESS POLYNEUROPATHY [None]
  - GRANULOMA [None]
  - METABOLIC DISORDER [None]
  - POST PROCEDURAL MYOCARDIAL INFARCTION [None]
  - POTENTIATING DRUG INTERACTION [None]
  - RENAL FAILURE ACUTE [None]
  - RHABDOMYOLYSIS [None]
  - SPLENIC INFARCTION [None]
  - SPLENIC RUPTURE [None]
  - TACHYPNOEA [None]
  - TRACHEAL HAEMORRHAGE [None]
